FAERS Safety Report 4518829-8 (Version None)
Quarter: 2004Q4

REPORT INFORMATION
  Report Type: 
  Country: None (occurrence: None)
  Receive Date: 20041206
  Receipt Date: 20041123
  Transmission Date: 20050328
  Serious: Yes (Other)
  Sender: FDA-Public Use
  Company Number: US-JNJFOC-20041106369

PATIENT
  Sex: Female

DRUGS (4)
  1. REMICADE [Suspect]
     Indication: RHEUMATOID ARTHRITIS
     Dosage: FIRST INFUSION
     Route: 042
  2. METHOTREXATE [Concomitant]
  3. ACTINOL [Concomitant]
  4. FOLIC ACID [Concomitant]

REACTIONS (2)
  - LYMPHOMA [None]
  - WEIGHT DECREASED [None]
